FAERS Safety Report 9139435 (Version 1)
Quarter: 2013Q1

REPORT INFORMATION
  Report Type: Spontaneous
  Country: FR (occurrence: FR)
  Receive Date: 20130305
  Receipt Date: 20130305
  Transmission Date: 20140127
  Serious: Yes (Hospitalization)
  Sender: FDA-Public Use
  Company Number: FR-AMGEN-FRASP2013014811

PATIENT
  Age: 56 Year
  Sex: Female

DRUGS (9)
  1. ENBREL [Suspect]
     Indication: PSORIATIC ARTHROPATHY
     Dosage: 1 DF, WEEKLY
     Route: 058
     Dates: start: 201211, end: 20121215
  2. ACTISKENAN [Concomitant]
     Dosage: 10 MG, 1X/DAY
     Route: 048
  3. LYRICA [Concomitant]
     Dosage: 50 MG, 2X/DAY
     Route: 048
  4. EFFEXOR [Concomitant]
     Dosage: 75 MG, 1X/DAY
     Route: 048
  5. INEXIUM /01479302/ [Concomitant]
     Dosage: 1 DF, 1X/DAY
     Route: 048
  6. BI-PROFENID [Concomitant]
     Dosage: 100 MG, 2X/DAY
     Route: 048
  7. SPECIAFOLDINE [Concomitant]
     Dosage: 10 MG, WEEKLY
     Route: 048
     Dates: start: 201205
  8. IMETH [Concomitant]
     Dosage: 15 MG, WEEKLY
     Route: 048
     Dates: start: 201205, end: 201211
  9. HUMIRA [Concomitant]
     Dosage: 40 MG, EVERY 2 WEEKS
     Route: 058
     Dates: start: 20120830

REACTIONS (1)
  - Oedema peripheral [Recovered/Resolved]
